FAERS Safety Report 8077077-8 (Version None)
Quarter: 2012Q1

REPORT INFORMATION
  Report Type: 
  Country: None (occurrence: None)
  Receive Date: 20120126
  Receipt Date: 20120126
  Transmission Date: 20120608
  Serious: Yes (Death)
  Sender: FDA-Public Use
  Company Number: None

PATIENT
  Age: 39 Year
  Sex: Female

DRUGS (10)
  1. FLUOXETINE [Suspect]
     Dosage: ORAL
     Route: 048
  2. ETHANOL (ETHANOL) [Suspect]
     Dosage: ORAL
     Route: 048
  3. GABAPENTIN [Suspect]
     Dosage: ORAL
     Route: 048
  4. CHLORZOXAZONE [Suspect]
     Dosage: ORAL
     Route: 048
  5. TRAMADOL HCL [Suspect]
     Dosage: ORAL
     Route: 048
  6. COLECALCIFEROL + CALCIUM CITRATE (COLECALCIFEROL + CALCIUM CITRATE) TA [Suspect]
     Dosage: ORAL
     Route: 048
  7. IRON (IRON [IRON[) [Suspect]
     Dosage: ORAL
     Route: 048
  8. HYDROCODONE BITARTRATE + ACETAMINOPHEN [Suspect]
     Dosage: ORAL
     Route: 048
  9. BENZONATATE [Suspect]
     Dosage: ORAL
     Route: 048
  10. OMEPRAZOLE [Suspect]
     Dosage: ORAL
     Route: 048

REACTIONS (2)
  - TOXICITY TO VARIOUS AGENTS [None]
  - COMPLETED SUICIDE [None]
